FAERS Safety Report 13903446 (Version 1)
Quarter: 2017Q3

REPORT INFORMATION
  Report Type: Spontaneous
  Country: US (occurrence: US)
  Receive Date: 20170824
  Receipt Date: 20170824
  Transmission Date: 20171127
  Serious: No
  Sender: FDA-Public Use
  Company Number: US-PFIZER INC-2017364235

PATIENT
  Age: 68 Year
  Sex: Male

DRUGS (1)
  1. METHOTREXATE SODIUM. [Suspect]
     Active Substance: METHOTREXATE SODIUM
     Dosage: 20 MG, WEEKLY

REACTIONS (16)
  - Musculoskeletal stiffness [Unknown]
  - Nail pitting [Unknown]
  - Haemoglobin abnormal [Unknown]
  - Joint swelling [Unknown]
  - Nodule [Unknown]
  - Nail dystrophy [Unknown]
  - Onycholysis [Unknown]
  - Kyphosis [Unknown]
  - Haematocrit decreased [Unknown]
  - Bone swelling [Unknown]
  - Psoriasis [Unknown]
  - Extremity contracture [Unknown]
  - Red cell distribution width increased [Unknown]
  - Red blood cell count decreased [Unknown]
  - Arthralgia [Unknown]
  - Joint range of motion decreased [Unknown]
